FAERS Safety Report 8887431 (Version 1)
Quarter: 2012Q4

REPORT INFORMATION
  Report Type: Spontaneous
  Country: US (occurrence: None)
  Receive Date: 20121101
  Receipt Date: 20121101
  Transmission Date: 20130627
  Serious: Yes (Disabling)
  Sender: FDA-Public Use
  Company Number: None

PATIENT
  Sex: Female
  Weight: 90.72 kg

DRUGS (2)
  1. DARVOCET [Suspect]
     Dosage: 1 Pill every 6 hours
     Dates: start: 1998, end: 2011
  2. AVANDIA [Suspect]
     Dosage: once a day
stop after heart attack

REACTIONS (2)
  - Ulcer haemorrhage [None]
  - Abdominal pain upper [None]
